FAERS Safety Report 11459668 (Version 3)
Quarter: 2018Q1

REPORT INFORMATION
  Report Type: Spontaneous
  Country: US (occurrence: US)
  Receive Date: 20150904
  Receipt Date: 20180315
  Transmission Date: 20180508
  Serious: Yes (Hospitalization)
  Sender: FDA-Public Use
  Company Number: US-ENDO PHARMACEUTICALS INC.-2015-002661

PATIENT
  Age: 71 Year
  Sex: Male
  Weight: 76.64 kg

DRUGS (2)
  1. TESTOSTERONE CYPIONATE. [Suspect]
     Active Substance: TESTOSTERONE CYPIONATE
     Indication: ANDROGEN REPLACEMENT THERAPY
     Dosage: UNK UNKNOWN, UNKNOWN
     Route: 065
     Dates: start: 20131002, end: 20140131
  2. TESTOPEL [Suspect]
     Active Substance: TESTOSTERONE
     Indication: ANDROGEN REPLACEMENT THERAPY
     Dosage: UNK UNKNOWN, UNKNOWN
     Route: 058
     Dates: start: 20130703, end: 20131002

REACTIONS (4)
  - Myocardial infarction [Unknown]
  - Thrombosis [Unknown]
  - Acute coronary syndrome [Unknown]
  - Injection site swelling [Unknown]

NARRATIVE: CASE EVENT DATE: 2013
